FAERS Safety Report 9391161 (Version 3)
Quarter: 2013Q3

REPORT INFORMATION
  Report Type: Spontaneous
  Country: JP (occurrence: JP)
  Receive Date: 20130709
  Receipt Date: 20130827
  Transmission Date: 20140515
  Serious: Yes (Death, Life-Threatening, Hospitalization, Other)
  Sender: FDA-Public Use
  Company Number: JP-JNJFOC-20130620025

PATIENT
  Age: 75 Year
  Sex: Female
  Weight: 48 kg

DRUGS (25)
  1. REMICADE [Suspect]
     Indication: COLITIS ULCERATIVE
     Route: 042
     Dates: start: 20120227
  2. REMICADE [Suspect]
     Indication: COLITIS ULCERATIVE
     Route: 042
     Dates: start: 20120214
  3. PREDONINE [Suspect]
     Indication: COLITIS ULCERATIVE
     Dosage: TAPPERED DOWN AFTER INTENSIVE INTRAVENOUS REGIMEN
     Route: 042
     Dates: start: 20120405
  4. GANCICLOVIR [Suspect]
     Indication: CYTOMEGALOVIRUS INFECTION
     Route: 065
     Dates: start: 20120512, end: 20120525
  5. PROGRAF [Suspect]
     Indication: COLITIS ULCERATIVE
     Dosage: 4 MG DOSE FOR ONE TREATMENT
     Route: 048
     Dates: start: 20120313, end: 20120316
  6. PROGRAF [Suspect]
     Indication: COLITIS ULCERATIVE
     Dosage: 2 MG DOSE FOR ONE TREATMENT
     Route: 048
     Dates: start: 20120307, end: 20120312
  7. PROGRAF [Suspect]
     Indication: COLITIS ULCERATIVE
     Dosage: 3 MG DOSE AT 8:00 HOURS AND 2 DOSE DOSE AT 20:00 HOURS
     Route: 048
     Dates: start: 20120317, end: 20120514
  8. PREDONINE [Suspect]
     Indication: COLITIS ULCERATIVE
     Route: 048
     Dates: start: 20091208
  9. PREDONINE [Suspect]
     Indication: COLITIS ULCERATIVE
     Route: 048
     Dates: start: 20120323
  10. PREDONINE [Suspect]
     Indication: COLITIS ULCERATIVE
     Route: 048
     Dates: start: 20120503
  11. PREDONINE [Suspect]
     Indication: COLITIS ULCERATIVE
     Route: 048
  12. PREDONINE [Suspect]
     Indication: COLITIS ULCERATIVE
     Dosage: 25 MG DOSE FOR ONE TREATMENT
     Route: 048
     Dates: start: 20120510, end: 20120514
  13. IMURAN [Concomitant]
     Indication: COLITIS ULCERATIVE
     Route: 048
     Dates: start: 20100105, end: 20100223
  14. 5 AMINOSALICYLIC ACID [Concomitant]
     Route: 065
  15. ENEMAS [Concomitant]
     Route: 065
  16. SALAZOPYRIN [Concomitant]
     Route: 065
     Dates: start: 2006
  17. RINDERON [Concomitant]
     Indication: COLITIS ULCERATIVE
     Route: 054
     Dates: start: 20061003
  18. PENTASA [Concomitant]
     Indication: COLITIS ULCERATIVE
     Route: 048
     Dates: start: 200906, end: 20120514
  19. PENTASA [Concomitant]
     Indication: COLITIS ULCERATIVE
     Route: 054
     Dates: start: 200909, end: 20120214
  20. PENTASA [Concomitant]
     Indication: COLITIS ULCERATIVE
     Route: 054
     Dates: end: 20120514
  21. GASTER D [Concomitant]
     Indication: GASTRITIS
     Route: 048
     Dates: end: 20120514
  22. LIPITOR [Concomitant]
     Indication: HYPERLIPIDAEMIA
     Route: 048
     Dates: end: 20120514
  23. EVISTA [Concomitant]
     Indication: OSTEOPOROSIS
     Route: 048
     Dates: end: 20120514
  24. BITSAN [Concomitant]
     Indication: GASTRIC ULCER
     Route: 048
  25. TAKEPRON [Concomitant]
     Indication: GASTRIC ULCER
     Route: 048
     Dates: start: 20120512, end: 20120514

REACTIONS (3)
  - Pneumocystis jirovecii pneumonia [Fatal]
  - Cytomegalovirus infection [Fatal]
  - Drug ineffective [Recovering/Resolving]
